FAERS Safety Report 22066881 (Version 1)
Quarter: 2023Q1

REPORT INFORMATION
  Report Type: Spontaneous
  Country: JP (occurrence: JP)
  Receive Date: 20230306
  Receipt Date: 20230306
  Transmission Date: 20230418
  Serious: Yes (Hospitalization)
  Sender: FDA-Public Use
  Company Number: JP-002147023-NVSJ2023JP004149

PATIENT
  Age: 43 Year
  Sex: Male
  Weight: 91.1 kg

DRUGS (1)
  1. KESIMPTA [Suspect]
     Active Substance: OFATUMUMAB
     Indication: Multiple sclerosis
     Dosage: 20 MG
     Route: 058
     Dates: start: 20230222

REACTIONS (2)
  - Physical deconditioning [Recovered/Resolved]
  - Hypoaesthesia [Recovered/Resolved]
